FAERS Safety Report 9894344 (Version 1)
Quarter: 2014Q1

REPORT INFORMATION
  Report Type: Report from Study
  Country: US (occurrence: US)
  Receive Date: 20140213
  Receipt Date: 20140213
  Transmission Date: 20141002
  Serious: Yes (Hospitalization, Other)
  Sender: FDA-Public Use
  Company Number: US-JNJFOC-20140204226

PATIENT
  Sex: Male
  Weight: 95.26 kg

DRUGS (3)
  1. REMICADE [Suspect]
     Indication: CROHN^S DISEASE
     Dosage: STARTED IN MID 90^S
     Route: 042
     Dates: end: 1999
  2. REMICADE [Suspect]
     Indication: CROHN^S DISEASE
     Route: 042
     Dates: start: 2001
  3. MERCAPTOPURINE [Suspect]
     Indication: CROHN^S DISEASE
     Route: 065
     Dates: start: 2001

REACTIONS (7)
  - Pyrexia [Recovered/Resolved]
  - Fistula [Unknown]
  - Liver disorder [Not Recovered/Not Resolved]
  - Platelet count decreased [Recovering/Resolving]
  - Red blood cell count decreased [Recovering/Resolving]
  - Influenza [Recovered/Resolved]
  - Myalgia [Recovered/Resolved]
